FAERS Safety Report 7918432-3 (Version None)
Quarter: 2011Q4

REPORT INFORMATION
  Report Type: 
  Country: None (occurrence: None)
  Receive Date: 20111116
  Receipt Date: 20111111
  Transmission Date: 20120403
  Serious: Yes (Hospitalization, Other)
  Sender: FDA-Public Use
  Company Number: US-ABBOTT-11P-163-0873578-00

PATIENT
  Sex: Female
  Weight: 111.23 kg

DRUGS (19)
  1. HUMIRA [Suspect]
     Indication: RHEUMATOID ARTHRITIS
     Route: 058
     Dates: start: 20000101, end: 20110201
  2. NOVOLOG [Concomitant]
     Indication: DIABETES MELLITUS
  3. PLAQUENIL [Concomitant]
     Indication: RHEUMATOID ARTHRITIS
  4. METFORMIN HCL [Concomitant]
     Indication: DIABETES MELLITUS
  5. OXYBUTYNIN [Concomitant]
     Indication: HYPERTONIC BLADDER
  6. HUMIRA [Suspect]
     Route: 058
     Dates: start: 20111111
  7. HYDROCHLOROTHIAZIDE [Concomitant]
     Indication: FLUID RETENTION
  8. VYTORIN [Concomitant]
     Indication: BLOOD CHOLESTEROL
  9. FLEXERIL [Concomitant]
     Indication: PAIN
  10. CITALOPRAM HYDROBROMIDE [Concomitant]
     Indication: DEPRESSION
  11. VITAMIN D [Concomitant]
     Indication: VITAMIN D DEFICIENCY
  12. METOPROLOL TARTRATE [Concomitant]
     Indication: CARDIAC DISORDER
  13. DIOVAN HCT [Concomitant]
     Indication: CARDIAC DISORDER
  14. ASPIRIN [Concomitant]
     Indication: CARDIAC DISORDER
  15. VICODIN [Concomitant]
     Indication: PAIN
  16. LANTUS [Concomitant]
     Indication: DIABETES MELLITUS
  17. METHOTREXATE [Concomitant]
     Indication: RHEUMATOID ARTHRITIS
  18. FOLIC ACID [Concomitant]
     Indication: RHEUMATOID ARTHRITIS
  19. PROTONIX [Concomitant]
     Indication: GASTROOESOPHAGEAL REFLUX DISEASE

REACTIONS (3)
  - CARDIAC STRESS TEST ABNORMAL [None]
  - PRESYNCOPE [None]
  - CORONARY ARTERY OCCLUSION [None]
